FAERS Safety Report 10159773 (Version 1)
Quarter: 2014Q2

REPORT INFORMATION
  Report Type: Spontaneous
  Country: CN (occurrence: CN)
  Receive Date: 20140508
  Receipt Date: 20140508
  Transmission Date: 20141212
  Serious: Yes (Life-Threatening)
  Sender: FDA-Public Use
  Company Number: CN-BAYER-2014-066593

PATIENT
  Age: 48 Year
  Sex: Male
  Weight: 75 kg

DRUGS (1)
  1. ULTRAVIST 370 [Suspect]
     Indication: IMAGING PROCEDURE
     Dosage: 75 ML, ONCE
     Route: 042
     Dates: start: 20120906, end: 20120906

REACTIONS (1)
  - Cardiac arrest [Recovering/Resolving]
